FAERS Safety Report 13549635 (Version 3)
Quarter: 2017Q3

REPORT INFORMATION
  Report Type: Spontaneous
  Country: US (occurrence: US)
  Receive Date: 20170516
  Receipt Date: 20170710
  Transmission Date: 20171127
  Serious: Yes (Life-Threatening, Hospitalization, Other)
  Sender: FDA-Public Use
  Company Number: US-AUROBINDO-AUR-APL-2017-33921

PATIENT
  Age: 39 Year
  Sex: Male

DRUGS (5)
  1. BUPIVACAINE HYDROCHLORIDE. [Suspect]
     Active Substance: BUPIVACAINE HYDROCHLORIDE
     Indication: ARTHRALGIA
     Dosage: UNK, TPI TARGETED THE LEFT ILIOPSOAS TENDON
     Route: 065
  2. EPINEPHRINE. [Suspect]
     Active Substance: EPINEPHRINE
     Indication: ARTHRALGIA
     Route: 065
  3. METHYLPREDNISOLONE. [Suspect]
     Active Substance: METHYLPREDNISOLONE
     Indication: ARTHRALGIA
     Route: 065
  4. METHYLPREDNISOLONE. [Suspect]
     Active Substance: METHYLPREDNISOLONE
     Dosage: UNK, TPI TARGETED THE LEFT ILIOPSOAS TENDON
     Route: 065
  5. EPINEPHRINE. [Suspect]
     Active Substance: EPINEPHRINE
     Dosage: TPI TARGETED THE LEFT ILIOPSOAS TENDON

REACTIONS (10)
  - Hypokalaemia [Unknown]
  - Dyspnoea [Unknown]
  - Hypopnoea [Unknown]
  - Respiratory distress [Unknown]
  - Paraplegia [Unknown]
  - Sinus arrhythmia [Unknown]
  - Quadriplegia [Unknown]
  - Paralysis [Unknown]
  - Blood creatine phosphokinase increased [Unknown]
  - Familial periodic paralysis [Recovered/Resolved]
